FAERS Safety Report 23240907 (Version 3)
Quarter: 2024Q2

REPORT INFORMATION
  Report Type: Report from Study
  Country: NL (occurrence: NL)
  Receive Date: 20231129
  Receipt Date: 20240419
  Transmission Date: 20240716
  Serious: Yes (Other)
  Sender: FDA-Public Use
  Company Number: NL-ABBVIE-5515835

PATIENT
  Sex: Male

DRUGS (4)
  1. CARBIDOPA\LEVODOPA [Suspect]
     Active Substance: CARBIDOPA\LEVODOPA
     Indication: Parkinson^s disease
     Route: 050
     Dates: start: 20210105
  2. CARBIDOPA\LEVODOPA [Suspect]
     Active Substance: CARBIDOPA\LEVODOPA
     Dosage: MD: 4.3ML, CD: 2.9ML/H, ED:  1.3ML, REMAINS AT 16 HOURS
     Route: 050
     Dates: start: 20231122, end: 20240416
  3. CARBIDOPA\LEVODOPA [Suspect]
     Active Substance: CARBIDOPA\LEVODOPA
     Dosage: CONTINUOUS DOSE WAS DECREASED BY 0.2 ML/H TO 2.7 ML/H.?REMAINS AT 16 HOURS
     Route: 050
  4. CARBIDOPA\LEVODOPA [Suspect]
     Active Substance: CARBIDOPA\LEVODOPA
     Dosage: CD: 2.7 ML/H
     Route: 050
     Dates: start: 20240416

REACTIONS (17)
  - Metastatic neoplasm [Not Recovered/Not Resolved]
  - Decreased appetite [Recovered/Resolved]
  - General physical health deterioration [Not Recovered/Not Resolved]
  - Dyskinesia [Not Recovered/Not Resolved]
  - Sleep disorder [Not Recovered/Not Resolved]
  - Hallucination [Unknown]
  - Gait disturbance [Not Recovered/Not Resolved]
  - Memory impairment [Not Recovered/Not Resolved]
  - Pain [Not Recovered/Not Resolved]
  - Freezing phenomenon [Not Recovered/Not Resolved]
  - Device physical property issue [Not Recovered/Not Resolved]
  - Unevaluable event [Not Recovered/Not Resolved]
  - Hypophagia [Recovered/Resolved]
  - Mobility decreased [Not Recovered/Not Resolved]
  - Abnormal faeces [Not Recovered/Not Resolved]
  - Cognitive disorder [Not Recovered/Not Resolved]
  - Unevaluable event [Not Recovered/Not Resolved]

NARRATIVE: CASE EVENT DATE: 20240101
